FAERS Safety Report 12870800 (Version 1)
Quarter: 2016Q4

REPORT INFORMATION
  Report Type: Spontaneous
  Country: US (occurrence: US)
  Receive Date: 20161021
  Receipt Date: 20161021
  Transmission Date: 20170207
  Serious: No
  Sender: FDA-Public Use
  Company Number: None

PATIENT
  Age: 65 Year
  Sex: Male
  Weight: 105.24 kg

DRUGS (1)
  1. HYOSCYAMINE 0.125MG SULFATE TABLETS VIRTUS [Suspect]
     Active Substance: HYOSCYAMINE
     Indication: POSTOPERATIVE CARE
     Dosage: HYOSCYAMINE 0.125 MG SULFATE TABLETS - Q6H AS NEEDED - PO
     Route: 048
     Dates: start: 20160623, end: 20160629

REACTIONS (1)
  - Seizure [None]

NARRATIVE: CASE EVENT DATE: 20160626
